FAERS Safety Report 8154657-2 (Version None)
Quarter: 2012Q1

REPORT INFORMATION
  Report Type: 
  Country: None (occurrence: None)
  Receive Date: 20120221
  Receipt Date: 20120215
  Transmission Date: 20120608
  Serious: Yes (Hospitalization)
  Sender: FDA-Public Use
  Company Number: AT-ABBOTT-12P-009-0905487-00

PATIENT
  Age: 37 Year
  Sex: Male

DRUGS (2)
  1. RISPERIDONE [Suspect]
     Indication: PRODUCT USED FOR UNKNOWN INDICATION
     Route: 065
     Dates: start: 20060101
  2. DEPAKENE [Suspect]
     Indication: PRODUCT USED FOR UNKNOWN INDICATION
     Route: 048
     Dates: start: 20030101

REACTIONS (7)
  - RESTLESSNESS [None]
  - DELIRIUM [None]
  - DISORIENTATION [None]
  - DYSCALCULIA [None]
  - AMNESIA [None]
  - BLOOD GLUCOSE DECREASED [None]
  - ANXIETY [None]
